FAERS Safety Report 4850459-0 (Version None)
Quarter: 2005Q4

REPORT INFORMATION
  Report Type: 
  Country: None (occurrence: None)
  Receive Date: 20051207
  Receipt Date: 20051207
  Transmission Date: 20060501
  Serious: Yes (Hospitalization)
  Sender: FDA-Public Use
  Company Number: None

PATIENT
  Age: 73 Year
  Sex: Male
  Weight: 62.1428 kg

DRUGS (1)
  1. HCTZ 25MG/LISINOPRIL 20MG [Suspect]
     Indication: HYPERTENSION
     Dosage: 2 TABS QAM PO
     Route: 048
     Dates: start: 20050421, end: 20050811

REACTIONS (3)
  - BLOOD CREATININE INCREASED [None]
  - HYPONATRAEMIA [None]
  - HYPOTENSION [None]
